FAERS Safety Report 8215742-X (Version None)
Quarter: 2012Q1

REPORT INFORMATION
  Report Type: 
  Country: None (occurrence: None)
  Receive Date: 20120316
  Receipt Date: 20120308
  Transmission Date: 20120608
  Serious: Yes (Other)
  Sender: FDA-Public Use
  Company Number: US-BAYER-2012-000910

PATIENT
  Age: 31 Year
  Sex: Female

DRUGS (7)
  1. ADACEL [Concomitant]
  2. ZITHROMAX [Concomitant]
  3. NAPROXEN (ALEVE) [Concomitant]
     Dosage: UNK UNK, BID
  4. MENACTRA [Concomitant]
  5. YAZ [Suspect]
     Indication: MENSTRUATION IRREGULAR
     Dosage: UNK
     Dates: start: 20060901, end: 20071001
  6. MUCINEX [Concomitant]
  7. IBUPROFEN [Concomitant]

REACTIONS (8)
  - PAIN [None]
  - GENERAL PHYSICAL HEALTH DETERIORATION [None]
  - PAIN IN EXTREMITY [None]
  - ANXIETY [None]
  - OEDEMA PERIPHERAL [None]
  - EMOTIONAL DISTRESS [None]
  - DEEP VEIN THROMBOSIS [None]
  - INJURY [None]
